FAERS Safety Report 6315388-4 (Version None)
Quarter: 2009Q3

REPORT INFORMATION
  Report Type: 
  Country: None (occurrence: None)
  Receive Date: 20090819
  Receipt Date: 20090810
  Transmission Date: 20100115
  Serious: Yes (Other)
  Sender: FDA-Public Use
  Company Number: US-PFIZER INC-2009253739

PATIENT
  Sex: Female

DRUGS (7)
  1. PROVERA [Suspect]
     Indication: HORMONE REPLACEMENT THERAPY
     Dosage: UNK
     Route: 048
     Dates: start: 19870101
  2. PREMARIN [Suspect]
     Indication: HORMONE REPLACEMENT THERAPY
     Dosage: UNK
     Dates: start: 19870101
  3. PREMPRO [Suspect]
     Indication: HORMONE REPLACEMENT THERAPY
     Dosage: UNK
     Dates: start: 19990101, end: 20010201
  4. MEDROXYPROGESTERONE ACETATE [Suspect]
     Indication: HORMONE REPLACEMENT THERAPY
  5. ESTROGEN NOS [Suspect]
     Indication: HORMONE REPLACEMENT THERAPY
  6. FOSAMAX [Concomitant]
     Indication: OSTEOPENIA
     Dosage: UNK
     Dates: start: 19990101, end: 20040714
  7. DETROL LA [Concomitant]
     Indication: POLLAKIURIA
     Dosage: UNK
     Dates: start: 20000101, end: 20040716

REACTIONS (1)
  - BREAST CANCER [None]
